FAERS Safety Report 4763325-6 (Version None)
Quarter: 2005Q3

REPORT INFORMATION
  Report Type: 
  Country: None (occurrence: None)
  Receive Date: 20050908
  Receipt Date: 20050829
  Transmission Date: 20060218
  Serious: Yes (Hospitalization)
  Sender: FDA-Public Use
  Company Number: FR-BRISTOL-MYERS SQUIBB COMPANY-13094503

PATIENT
  Age: 62 Year
  Sex: Male
  Weight: 83 kg

DRUGS (5)
  1. IRBESARTAN [Suspect]
     Indication: ESSENTIAL HYPERTENSION
     Route: 048
     Dates: start: 20050101, end: 20050801
  2. BACTRIM [Suspect]
     Indication: PROSTATITIS
     Dates: start: 20050709, end: 20050730
  3. TAHOR [Suspect]
     Indication: LIPIDS ABNORMAL
     Dates: end: 20050801
  4. GLYBURIDE [Concomitant]
     Dates: start: 20020801, end: 20050801
  5. METFORMINE BIOGARAN [Concomitant]
     Dates: start: 20050507, end: 20050801

REACTIONS (5)
  - CHOLESTASIS [None]
  - HEPATIC ENZYME INCREASED [None]
  - HYPOTENSION [None]
  - MALAISE [None]
  - PYREXIA [None]
